FAERS Safety Report 12912500 (Version 1)
Quarter: 2016Q4

REPORT INFORMATION
  Report Type: Spontaneous
  Country: FR (occurrence: FR)
  Receive Date: 20161104
  Receipt Date: 20161104
  Transmission Date: 20170207
  Serious: Yes (Hospitalization)
  Sender: FDA-Public Use
  Company Number: FR-PFIZER INC-2016500318

PATIENT
  Age: 69 Year
  Sex: Female

DRUGS (17)
  1. LASILIX /00032601/ [Suspect]
     Active Substance: FUROSEMIDE
     Indication: HYPERTENSION
     Dosage: 80 MG, 2X/DAY
     Route: 048
     Dates: end: 20151215
  2. ZOPHREN /00955301/ [Concomitant]
     Active Substance: ONDANSETRON
  3. ALPRAZOLAM. [Concomitant]
     Active Substance: ALPRAZOLAM
  4. ADENURIC [Concomitant]
     Active Substance: FEBUXOSTAT
  5. DUROGESIC [Concomitant]
     Active Substance: FENTANYL
  6. TIORFAN [Concomitant]
     Active Substance: RACECADOTRIL
  7. TARDYFERON [Concomitant]
     Active Substance: FERROUS SULFATE
  8. ALDACTONE [Suspect]
     Active Substance: SPIRONOLACTONE
     Indication: HYPERTENSION
     Dosage: 75 MG, 3X/DAY
     Route: 048
     Dates: end: 20151215
  9. GAVISCON /00237601/ [Concomitant]
     Active Substance: ALUMINUM HYDROXIDE\MAGNESIUM CARBONATE
  10. ACTISKENAN [Concomitant]
     Active Substance: MORPHINE SULFATE
  11. KALEORID [Concomitant]
     Active Substance: POTASSIUM CHLORIDE
  12. LANTUS [Concomitant]
     Active Substance: INSULIN GLARGINE
  13. INEXIUM /01479302/ [Concomitant]
     Active Substance: ESOMEPRAZOLE MAGNESIUM
  14. INEGY [Concomitant]
     Active Substance: EZETIMIBE\SIMVASTATIN
  15. LOVENOX [Concomitant]
     Active Substance: ENOXAPARIN SODIUM
  16. LOPERAMIDE CHLORHYDRATE [Concomitant]
     Active Substance: LOPERAMIDE HYDROCHLORIDE
  17. DOXYCYCLINE. [Concomitant]
     Active Substance: DOXYCYCLINE

REACTIONS (3)
  - Oliguria [Recovered/Resolved]
  - Dehydration [Recovered/Resolved]
  - Acute kidney injury [Recovered/Resolved]

NARRATIVE: CASE EVENT DATE: 20151215
